FAERS Safety Report 26085235 (Version 3)
Quarter: 2025Q4

REPORT INFORMATION
  Report Type: Spontaneous
  Country: JP (occurrence: JP)
  Receive Date: 20251125
  Receipt Date: 20251217
  Transmission Date: 20260118
  Serious: Yes (Other)
  Sender: GLAXOSMITHKLINE
  Company Number: JP-GSK-JP2025150383

PATIENT
  Age: 70 Year
  Sex: Male

DRUGS (1)
  1. NUCALA [Suspect]
     Active Substance: MEPOLIZUMAB
     Indication: Asthma
     Dosage: 100 MG

REACTIONS (1)
  - Eosinophilic granulomatosis with polyangiitis [Recovering/Resolving]

NARRATIVE: CASE EVENT DATE: 20251101
